FAERS Safety Report 11853135 (Version 1)
Quarter: 2015Q4

REPORT INFORMATION
  Report Type: Spontaneous
  Country: US (occurrence: US)
  Receive Date: 20151218
  Receipt Date: 20151218
  Transmission Date: 20160305
  Serious: No
  Sender: FDA-Public Use
  Company Number: US-BRISTOL-MYERS SQUIBB COMPANY-BMS-2015-089944

PATIENT
  Age: 49 Year
  Sex: Male

DRUGS (2)
  1. CETUXIMAB [Suspect]
     Active Substance: CETUXIMAB
     Indication: ANAL CANCER METASTATIC
     Dosage: 400 MG/M2, UNK
     Route: 042
  2. MITOMYCIN. [Suspect]
     Active Substance: MITOMYCIN
     Indication: ANAL CANCER METASTATIC
     Dosage: 10 MG/M2, UNK
     Route: 042

REACTIONS (2)
  - Rash [Unknown]
  - Off label use [Unknown]
